FAERS Safety Report 21873618 (Version 1)
Quarter: 2023Q1

REPORT INFORMATION
  Report Type: Spontaneous
  Country: US (occurrence: US)
  Receive Date: 20230117
  Receipt Date: 20230117
  Transmission Date: 20230418
  Serious: No
  Sender: FDA-Public Use
  Company Number: US-JUBILANT CADISTA PHARMACEUTICALS INC.-2022JUB00148

PATIENT
  Sex: Male

DRUGS (2)
  1. TERAZOSIN [Suspect]
     Active Substance: TERAZOSIN HYDROCHLORIDE
     Indication: Pollakiuria
     Dosage: 5 MG, 1X/DAY AN HOUR BEFRERE BEDTIME
     Dates: end: 20220516
  2. TERAZOSIN [Suspect]
     Active Substance: TERAZOSIN HYDROCHLORIDE
     Indication: Lower urinary tract symptoms

REACTIONS (3)
  - Calculus urinary [Unknown]
  - Therapeutic product effect incomplete [Recovered/Resolved]
  - Off label use [Recovered/Resolved]
